FAERS Safety Report 9116454 (Version 3)
Quarter: 2013Q2

REPORT INFORMATION
  Report Type: Spontaneous
  Country: FI (occurrence: FI)
  Receive Date: 20130225
  Receipt Date: 20130506
  Transmission Date: 20140414
  Serious: Yes (Hospitalization, Other)
  Sender: FDA-Public Use
  Company Number: PHHY2013FI018286

PATIENT
  Age: 80 Year
  Sex: Male

DRUGS (11)
  1. EXELON PATCH [Suspect]
     Indication: DEMENTIA ALZHEIMER^S TYPE
     Dosage: 4.6 MG/24 HOURS
     Route: 062
     Dates: start: 20120816, end: 20130222
  2. MAREVAN [Concomitant]
     Indication: THROMBOSIS
     Dosage: 3 MG, UNK
     Dates: start: 20091110
  3. LINATIL COMP [Concomitant]
     Dosage: 1.5 DF, QD
     Dates: start: 20090429
  4. PANADOL FORTE [Concomitant]
     Dosage: 1 DF, PRN
     Dates: start: 20091110
  5. BETASERC [Concomitant]
     Dosage: 1 DF, TID
     Dates: start: 20121212
  6. NASOFAN [Concomitant]
     Dosage: 1 DF, PRN
     Dates: start: 20121204
  7. COCILLANA-ETYFIN                   /06573601/ [Concomitant]
     Dosage: 5 ML, TID
     Dates: start: 20121204
  8. OFTAGEL [Concomitant]
     Dosage: 1-2 DF, QID
     Dates: start: 20121204
  9. ARTELAC [Concomitant]
     Dosage: 1-2 DF, QID
     Dates: start: 20121204
  10. EMCONCOR [Concomitant]
     Dosage: 2.5 MG, QD
     Dates: end: 20130109
  11. EMCONCOR [Concomitant]
     Dosage: 1.25 MG, QD
     Dates: start: 20130110

REACTIONS (7)
  - Electrocardiogram QT prolonged [Recovering/Resolving]
  - Bradycardia [Recovering/Resolving]
  - Atrial flutter [Recovering/Resolving]
  - Hypertension [Recovering/Resolving]
  - Atrial fibrillation [Recovering/Resolving]
  - Ventricular extrasystoles [Recovering/Resolving]
  - Blood glucose increased [Recovering/Resolving]
